FAERS Safety Report 8042775-9 (Version None)
Quarter: 2011Q4

REPORT INFORMATION
  Report Type: 
  Country: None (occurrence: None)
  Receive Date: 20111209
  Receipt Date: 20111128
  Transmission Date: 20120403
  Serious: Yes (Other)
  Sender: FDA-Public Use
  Company Number: SPV1-2011-00627

PATIENT
  Age: 34 Year
  Sex: Female
  Weight: 64 kg

DRUGS (2)
  1. LEXAPRO [Suspect]
     Indication: STRESS
     Dosage: 10 MG, 1X/DAY: QD, ORAL
     Route: 048
     Dates: start: 20110101
  2. ADDERALL 10 [Suspect]
     Indication: ATTENTION DEFICIT/HYPERACTIVITY DISORDER
     Dosage: 15 MG, 1X/DAY: QD, ORAL
     Route: 048
     Dates: start: 20110101

REACTIONS (1)
  - WEIGHT DECREASED [None]
